FAERS Safety Report 8857694 (Version 1)
Quarter: 2012Q4

REPORT INFORMATION
  Report Type: 
  Country: DE (occurrence: DE)
  Receive Date: 20121024
  Receipt Date: 20121024
  Transmission Date: 20130627
  Serious: Yes (Other)
  Sender: FDA-Public Use
  Company Number: DE-BAXTER-2012BAX017385

PATIENT
  Age: 57 Year
  Sex: Male
  Weight: 84.4 kg

DRUGS (15)
  1. PHYSIONEAL [Suspect]
     Indication: CHRONIC RENAL INSUFFICIENCY
     Route: 033
     Dates: start: 20120508
  2. PHYSIONEAL [Suspect]
     Indication: CHRONIC RENAL INSUFFICIENCY
     Route: 033
     Dates: start: 20120508
  3. EXTRANEAL [Suspect]
     Indication: CHRONIC RENAL INSUFFICIENCY
     Route: 033
     Dates: start: 20120508
  4. TORAGAMMA [Concomitant]
     Indication: DRUG USE FOR UNKNOWN INDICATION
     Route: 048
  5. XIPAMID AL [Concomitant]
     Indication: DRUG USE FOR UNKNOWN INDICATION
     Route: 048
  6. CARMEN [Concomitant]
     Indication: DRUG USE FOR UNKNOWN INDICATION
     Route: 048
  7. BISOPROLOL 1A PHARMA 5 [Concomitant]
     Indication: DRUG USE FOR UNKNOWN INDICATION
     Route: 048
  8. DOXAZOSIN 2 HEUMANN [Concomitant]
     Indication: DRUG USE FOR UNKNOWN INDICATION
     Route: 048
  9. ALLOPURINOL 100 1A PHARMA [Concomitant]
     Indication: DRUG USE FOR UNKNOWN INDICATION
     Route: 048
  10. PANTOPRAZOL NY [Concomitant]
     Indication: DRUG USE FOR UNKNOWN INDICATION
     Dosage: 40mgC
     Route: 048
  11. CITALOPRAM ABZ [Concomitant]
     Indication: DRUG USE FOR UNKNOWN INDICATION
     Route: 048
  12. PRAVIDEL [Concomitant]
     Indication: DRUG USE FOR UNKNOWN INDICATION
     Route: 048
  13. RENAGEL [Concomitant]
     Indication: DRUG USE FOR UNKNOWN INDICATION
     Route: 048
  14. ISOMOL [Concomitant]
     Indication: DRUG USE FOR UNKNOWN INDICATION
     Route: 048
  15. CPS [Concomitant]
     Indication: DRUG USE FOR UNKNOWN INDICATION
     Route: 048

REACTIONS (8)
  - Eosinophilia [Recovered/Resolved]
  - Peritonitis [Recovered/Resolved]
  - Noninfectious peritonitis [Recovered/Resolved]
  - Musculoskeletal pain [Recovered/Resolved]
  - Catheter site erythema [Recovered/Resolved]
  - Peritoneal cloudy effluent [None]
  - Hypersensitivity [None]
  - Medical device complication [None]
